FAERS Safety Report 16006742 (Version 1)
Quarter: 2019Q1

REPORT INFORMATION
  Report Type: Spontaneous
  Country: US (occurrence: US)
  Receive Date: 20190226
  Receipt Date: 20190226
  Transmission Date: 20190418
  Serious: No
  Sender: FDA-Public Use
  Company Number: US-EMD SERONO-9073868

PATIENT
  Sex: Male

DRUGS (1)
  1. REBIF [Suspect]
     Active Substance: INTERFERON BETA-1A
     Indication: RELAPSING-REMITTING MULTIPLE SCLEROSIS
     Route: 058

REACTIONS (5)
  - Musculoskeletal disorder [Unknown]
  - Gait disturbance [Unknown]
  - Coordination abnormal [Unknown]
  - Fall [Unknown]
  - Rotator cuff syndrome [Unknown]
